FAERS Safety Report 20247599 (Version 9)
Quarter: 2022Q3

REPORT INFORMATION
  Report Type: Report from Study
  Country: CA (occurrence: CA)
  Receive Date: 20211229
  Receipt Date: 20220927
  Transmission Date: 20221027
  Serious: Yes (Other)
  Sender: FDA-Public Use
  Company Number: CA-BAUSCH-BL-2021-029788

PATIENT
  Sex: Female
  Weight: 98 kg

DRUGS (10)
  1. CONTRAVE [Suspect]
     Active Substance: BUPROPION HYDROCHLORIDE\NALTREXONE HYDROCHLORIDE
     Indication: Weight control
     Dosage: 90MG/8MG, 4 MONTHS AGO (FROM INITIAL REPORT DATE)
     Route: 048
     Dates: start: 2021, end: 2021
  2. CONTRAVE [Suspect]
     Active Substance: BUPROPION HYDROCHLORIDE\NALTREXONE HYDROCHLORIDE
     Dosage: 90MG/8MG, 2 TAB Q AM, 2 TAB Q PM.
     Route: 048
     Dates: start: 20210607
  3. CONTRAVE [Suspect]
     Active Substance: BUPROPION HYDROCHLORIDE\NALTREXONE HYDROCHLORIDE
     Dosage: 90MG/8MG, 2 TAB Q AM, 2 TAB Q PM. (2ND ATTEMPT)
     Route: 048
     Dates: start: 20220204, end: 20220328
  4. CONTRAVE [Suspect]
     Active Substance: BUPROPION HYDROCHLORIDE\NALTREXONE HYDROCHLORIDE
     Dosage: 90MG/8MG, 2 TAB Q AM,2 TAB Q PM. (RESTARTED WITH 3RD ATTEMPT)
     Route: 048
     Dates: start: 20220411
  5. CONTRAVE [Suspect]
     Active Substance: BUPROPION HYDROCHLORIDE\NALTREXONE HYDROCHLORIDE
     Dosage: 90MG/8MG, 2 TAB Q AM
     Route: 048
     Dates: start: 20220903
  6. CONTRAVE [Suspect]
     Active Substance: BUPROPION HYDROCHLORIDE\NALTREXONE HYDROCHLORIDE
     Dosage: 90MG/8MG, 2 TAB Q AM,2 TAB Q PM. (4RD ATTEMPT)
     Route: 048
     Dates: start: 20220907
  7. SIMPONI [Concomitant]
     Active Substance: GOLIMUMAB
     Indication: Ankylosing spondylitis
     Dosage: 1 IN 1 WK
     Route: 058
  8. TYLENOL [Concomitant]
     Active Substance: ACETAMINOPHEN
     Indication: Ankylosing spondylitis
     Dosage: 1500 MG (500 MG, 1 IN 8 HR)
     Route: 048
  9. NABILONE [Concomitant]
     Active Substance: NABILONE
     Indication: Sleep disorder
     Dosage: 1 IN 24 HR
     Route: 048
     Dates: start: 20211104
  10. KETOROLAC [Concomitant]
     Active Substance: KETOROLAC TROMETHAMINE
     Indication: Ankylosing spondylitis
     Dosage: 1 IN 24 HR
     Route: 048
     Dates: start: 20220411, end: 20220420

REACTIONS (22)
  - Spinal operation [Unknown]
  - Precancerous condition [Unknown]
  - Surgery [Recovering/Resolving]
  - Pain [Not Recovered/Not Resolved]
  - Sleep apnoea syndrome [Not Recovered/Not Resolved]
  - Otolithiasis [Not Recovered/Not Resolved]
  - Arthralgia [Not Recovered/Not Resolved]
  - Ear pain [Unknown]
  - Stress [Not Recovered/Not Resolved]
  - Headache [Recovered/Resolved]
  - Hypertension [Not Recovered/Not Resolved]
  - Malaise [Unknown]
  - Abdominal pain upper [Not Recovered/Not Resolved]
  - Tremor [Not Recovered/Not Resolved]
  - Hyperhidrosis [Not Recovered/Not Resolved]
  - Hot flush [Not Recovered/Not Resolved]
  - Vertigo [Not Recovered/Not Resolved]
  - Therapy interrupted [Unknown]
  - Drug titration error [Unknown]
  - Product prescribing error [Unknown]
  - Intentional dose omission [Unknown]
  - Product use issue [Unknown]

NARRATIVE: CASE EVENT DATE: 20210101
